FAERS Safety Report 4656070-9 (Version None)
Quarter: 2005Q2

REPORT INFORMATION
  Report Type: 
  Country: None (occurrence: None)
  Receive Date: 20050504
  Receipt Date: 20050419
  Transmission Date: 20051028
  Serious: Yes (Hospitalization)
  Sender: FDA-Public Use
  Company Number: 603475

PATIENT
  Sex: 0

DRUGS (1)
  1. FIBIRIN SEALANT VAPOR HEATED, 41U THROMBIN [Suspect]

REACTIONS (4)
  - ABDOMINAL ADHESIONS [None]
  - APPLICATION SITE REACTION [None]
  - GASTROINTESTINAL OBSTRUCTION [None]
  - POST PROCEDURAL COMPLICATION [None]
